FAERS Safety Report 10138150 (Version 2)
Quarter: 2015Q1

REPORT INFORMATION
  Report Type: Other
  Country: US (occurrence: US)
  Receive Date: 20140429
  Receipt Date: 20150219
  Transmission Date: 20150720
  Serious: Yes (Death, Hospitalization, Other)
  Sender: FDA-Public Use
  Company Number: US-GSKPPD-2014GSK042138

PATIENT
  Age: 71 Year
  Sex: Male

DRUGS (4)
  1. ACCUPRIL [Concomitant]
     Active Substance: QUINAPRIL HYDROCHLORIDE
  2. AVANDIA [Suspect]
     Active Substance: ROSIGLITAZONE MALEATE
     Indication: DIABETES MELLITUS
     Dosage: DATES OF AVANDIA USE COULD NOT BE CONFIRMED IN RECORDS REVIEWED.
     Route: 048
  3. LANOXIN [Concomitant]
     Active Substance: DIGOXIN
  4. CORDARONE [Concomitant]
     Active Substance: AMIODARONE HYDROCHLORIDE

REACTIONS (2)
  - Cerebral infarction [Recovered/Resolved]
  - Cardiac failure congestive [Fatal]

NARRATIVE: CASE EVENT DATE: 20010819
